FAERS Safety Report 5068769-3 (Version None)
Quarter: 2006Q3

REPORT INFORMATION
  Report Type: 
  Country: None (occurrence: None)
  Receive Date: 20060802
  Receipt Date: 20060323
  Transmission Date: 20061208
  Serious: No
  Sender: FDA-Public Use
  Company Number: US-BRISTOL-MYERS SQUIBB COMPANY-13325113

PATIENT
  Age: 48 Year
  Sex: Female
  Weight: 53 kg

DRUGS (11)
  1. COUMADIN [Suspect]
     Indication: HEART VALVE REPLACEMENT
     Dosage: STARTED IN VARYING DOSES; CURRENTLY 4MG TAB DAILY X 3 DAYS ALTERN. W/ 3MG TAB DAILY X 1 DAY
     Route: 048
  2. COUMADIN [Suspect]
     Indication: HEART VALVE REPLACEMENT
     Dosage: STARTED IN VARYING DOSES; CURRENTLY 4MG TAB DAILY X 3 DAYS ALTERN. W/ 3MG TAB DAILY X 1 DAY
     Route: 048
  3. ACTONEL [Concomitant]
  4. MIACALCIN [Concomitant]
  5. LIPITOR [Concomitant]
  6. LANOXIN [Concomitant]
     Dates: start: 19910101
  7. SKELAXIN [Concomitant]
     Indication: MUSCLE RELAXANT THERAPY
  8. XANAX [Concomitant]
  9. ELAVIL [Concomitant]
  10. FISH OIL [Concomitant]
  11. VITAMIN D [Concomitant]

REACTIONS (1)
  - BONE DENSITY DECREASED [None]
